FAERS Safety Report 6445026-1 (Version None)
Quarter: 2009Q4

REPORT INFORMATION
  Report Type: 
  Country: None (occurrence: None)
  Receive Date: 20091118
  Receipt Date: 20091112
  Transmission Date: 20100525
  Serious: Yes (Hospitalization, Other)
  Sender: FDA-Public Use
  Company Number: US-MERCK-0910USA02746

PATIENT
  Age: 56 Year
  Sex: Male
  Weight: 58 kg

DRUGS (15)
  1. ISENTRESS [Suspect]
     Indication: HIV INFECTION
     Route: 048
     Dates: start: 20091001, end: 20091014
  2. ISENTRESS [Suspect]
     Route: 048
     Dates: start: 20090601, end: 20090901
  3. BACTRIM [Concomitant]
     Route: 065
  4. TRUVADA [Suspect]
     Route: 065
     Dates: start: 20090601
  5. ETRAVIRINE [Suspect]
     Route: 065
     Dates: start: 20090601
  6. SAQUINAVIR [Suspect]
     Route: 065
     Dates: start: 20090601
  7. LAMIVUDINE [Suspect]
     Indication: HIV INFECTION
     Route: 048
     Dates: start: 20091001, end: 20091014
  8. MARAVIROC [Concomitant]
     Indication: HIV INFECTION
     Route: 048
     Dates: start: 20091001, end: 20091004
  9. DARUNAVIR [Suspect]
     Indication: HIV INFECTION
     Route: 048
     Dates: start: 20091001, end: 20091014
  10. PENTAMIDINE ISETHIONATE [Concomitant]
     Indication: OPPORTUNISTIC INFECTION PROPHYLAXIS
     Route: 065
     Dates: start: 20090901
  11. FOLIC ACID [Concomitant]
     Route: 065
  12. LORATADINE [Concomitant]
     Route: 065
  13. HYDROCORTISONE ACETATE [Concomitant]
     Route: 065
  14. BENADRYL [Concomitant]
     Route: 065
  15. RITONAVIR [Suspect]
     Route: 065
     Dates: start: 20091001

REACTIONS (3)
  - HEPATOTOXICITY [None]
  - HYPOTENSION [None]
  - RASH [None]
